FAERS Safety Report 6646537-6 (Version None)
Quarter: 2010Q1

REPORT INFORMATION
  Report Type: 
  Country: None (occurrence: None)
  Receive Date: 20100323
  Receipt Date: 20100316
  Transmission Date: 20100710
  Serious: Yes (Hospitalization)
  Sender: FDA-Public Use
  Company Number: ES-PERRIGO-10ES007940

PATIENT
  Age: 75 Year
  Sex: Female

DRUGS (3)
  1. IBUPROFEN 200 MG 604 [Suspect]
     Indication: SKIN ULCER
     Route: 065
  2. AMOXICILLIN AND CLAVULANATE POTASSIUM [Concomitant]
     Indication: SKIN ULCER
  3. FUROSEMIDE [Concomitant]
     Indication: OEDEMA PERIPHERAL
     Dosage: 40 MG, QD
     Route: 048

REACTIONS (11)
  - ANURIA [None]
  - CONDITION AGGRAVATED [None]
  - DEHYDRATION [None]
  - ELECTROCARDIOGRAM QRS COMPLEX PROLONGED [None]
  - ELECTROCARDIOGRAM T WAVE PEAKED [None]
  - HYPERKALAEMIA [None]
  - MUSCULAR WEAKNESS [None]
  - NEPHROPATHY [None]
  - PARAESTHESIA [None]
  - QUADRIPARESIS [None]
  - RENAL FAILURE ACUTE [None]
